FAERS Safety Report 14333611 (Version 1)
Quarter: 2017Q4

REPORT INFORMATION
  Report Type: Spontaneous
  Country: ES (occurrence: ES)
  Receive Date: 20171228
  Receipt Date: 20171228
  Transmission Date: 20180321
  Serious: Yes (Hospitalization)
  Sender: FDA-Public Use
  Company Number: ES-SA-2017SA263280

PATIENT
  Age: 81 Year
  Sex: Female

DRUGS (4)
  1. KWIKPEN [Concomitant]
  2. LANTUS [Suspect]
     Active Substance: INSULIN GLARGINE
     Indication: TYPE 2 DIABETES MELLITUS
     Dosage: DOSE- 38-40 IU/DAY
     Route: 058
     Dates: start: 2012
  3. LANTUS [Suspect]
     Active Substance: INSULIN GLARGINE
     Indication: TYPE 2 DIABETES MELLITUS
     Dosage: DOSE (68/0/68)
     Route: 058
     Dates: start: 2014
  4. HUMALOG [Concomitant]
     Active Substance: INSULIN LISPRO
     Indication: TYPE 2 DIABETES MELLITUS
     Route: 058

REACTIONS (8)
  - Infection [Recovered/Resolved]
  - Hyperglycaemia [Recovered/Resolved]
  - Systemic infection [Recovered/Resolved]
  - Blood pressure abnormal [Recovered/Resolved]
  - Nasopharyngitis [Recovered/Resolved]
  - Product use issue [Unknown]
  - Bronchitis [Recovered/Resolved]
  - Urinary tract infection [Recovered/Resolved]
